FAERS Safety Report 7917906-9 (Version None)
Quarter: 2011Q4

REPORT INFORMATION
  Report Type: 
  Country: None (occurrence: None)
  Receive Date: 20111116
  Receipt Date: 20111110
  Transmission Date: 20120403
  Serious: Yes (Other)
  Sender: FDA-Public Use
  Company Number: PHHY2011FR85028

PATIENT
  Sex: Male
  Weight: 85 kg

DRUGS (5)
  1. PREDNISOLONE [Concomitant]
     Indication: CHRONIC OBSTRUCTIVE PULMONARY DISEASE
     Dosage: 20 MG DAILY
  2. ZOLEDRONOC ACID [Suspect]
     Indication: OSTEOPOROSIS
     Route: 042
     Dates: start: 20100929
  3. SULFASALAZINE [Concomitant]
     Indication: POLYARTHRITIS
     Dosage: 2 G DAILY
  4. ESOMEPRAZOLE [Concomitant]
     Dosage: 20 MG DAILY
  5. SPIRIVA [Concomitant]
     Indication: CHRONIC OBSTRUCTIVE PULMONARY DISEASE

REACTIONS (2)
  - FACE OEDEMA [None]
  - PYREXIA [None]
